FAERS Safety Report 8047722-1 (Version None)
Quarter: 2012Q1

REPORT INFORMATION
  Report Type: 
  Country: None (occurrence: None)
  Receive Date: 20120116
  Receipt Date: 20120110
  Transmission Date: 20120608
  Serious: Yes (Death, Hospitalization, Other)
  Sender: FDA-Public Use
  Company Number: CHPA2012US000879

PATIENT
  Age: 19 Year
  Sex: Female

DRUGS (6)
  1. ACETAMINOPHEN [Suspect]
     Indication: MIGRAINE
     Dosage: UNK, UNK
     Route: 048
  2. MARIJUANA [Suspect]
     Dosage: UNK, UNK
  3. PHENERGAN [Suspect]
     Indication: MIGRAINE
     Dosage: UNK, UNK
     Dates: start: 20110505
  4. LORTAB [Suspect]
     Indication: MIGRAINE
     Dosage: UNK, UNK
     Dates: start: 20110505
  5. MORPHINE [Suspect]
     Indication: MIGRAINE
     Dosage: UNK, UNK
     Dates: start: 20110504
  6. EXCEDRIN (MIGRAINE) [Suspect]
     Indication: MIGRAINE
     Dosage: UNK, UNK
     Route: 048
     Dates: start: 20110502, end: 20110504

REACTIONS (3)
  - OVERDOSE [None]
  - MIGRAINE [None]
  - CARDIAC ARREST [None]
